FAERS Safety Report 11075396 (Version 1)
Quarter: 2015Q2

REPORT INFORMATION
  Report Type: Spontaneous
  Country: GB (occurrence: GB)
  Receive Date: 20150429
  Receipt Date: 20150429
  Transmission Date: 20150821
  Serious: Yes (Other)
  Sender: FDA-Public Use
  Company Number: GB-RANBAXY-2015RR-91949

PATIENT
  Age: 28 Year
  Sex: Female
  Weight: 74 kg

DRUGS (11)
  1. QVAR [Concomitant]
     Active Substance: BECLOMETHASONE DIPROPIONATE
     Indication: PRODUCT USED FOR UNKNOWN INDICATION
     Dosage: 1 DF, BID
     Route: 065
     Dates: start: 20130321, end: 20150202
  2. SALBUTAMOL [Concomitant]
     Active Substance: ALBUTEROL
     Indication: ASTHMA
     Dosage: UNK
     Route: 065
     Dates: start: 20111206
  3. SERTRALINE [Concomitant]
     Active Substance: SERTRALINE HYDROCHLORIDE
     Indication: PRODUCT USED FOR UNKNOWN INDICATION
     Dosage: 1 DF, DAILY
     Route: 065
     Dates: start: 20140715, end: 201504
  4. QUETIAPINE [Concomitant]
     Active Substance: QUETIAPINE
     Indication: PRODUCT USED FOR UNKNOWN INDICATION
     Dosage: 3 DF, DAILY
     Route: 065
     Dates: start: 20131024, end: 201504
  5. SERTRALINE [Concomitant]
     Active Substance: SERTRALINE HYDROCHLORIDE
     Indication: DEPRESSION
     Dosage: 1 DF, DAILY
     Route: 065
     Dates: start: 20140521, end: 201504
  6. CITALOPRAM [Suspect]
     Active Substance: CITALOPRAM HYDROBROMIDE
     Indication: DEPRESSION
     Dosage: UNK
     Route: 065
  7. FOSTAIR [Suspect]
     Active Substance: BECLOMETHASONE\FORMOTEROL
     Indication: ASTHMA
     Dosage: 212 ?G, BID
     Route: 055
     Dates: start: 20141130, end: 20141210
  8. TIOTROPIUM BROMIDE [Concomitant]
     Active Substance: TIOTROPIUM BROMIDE
     Indication: PRODUCT USED FOR UNKNOWN INDICATION
     Dosage: 1 DF, DAILY
     Route: 065
     Dates: start: 20130122, end: 20150226
  9. MONTELUKAST [Concomitant]
     Active Substance: MONTELUKAST SODIUM
     Indication: ASTHMA
     Dosage: 1 DF, UNK
     Route: 065
     Dates: start: 201008, end: 201504
  10. QUETIAPINE [Concomitant]
     Active Substance: QUETIAPINE
     Indication: ANXIETY
     Dosage: 1 DF, DAILY
     Route: 065
     Dates: start: 20130607, end: 201504
  11. CERAZETTE [Concomitant]
     Active Substance: DESOGESTREL
     Indication: PRODUCT USED FOR UNKNOWN INDICATION
     Dosage: 1 DF, DAILY
     Route: 065
     Dates: start: 20110906, end: 20150304

REACTIONS (2)
  - Tachycardia [Recovered/Resolved]
  - Tremor [Recovered/Resolved]

NARRATIVE: CASE EVENT DATE: 20141201
